FAERS Safety Report 10348944 (Version 2)
Quarter: 2014Q3

REPORT INFORMATION
  Report Type: Spontaneous
  Country: US (occurrence: US)
  Receive Date: 20140729
  Receipt Date: 20140905
  Transmission Date: 20150326
  Serious: Yes (Other)
  Sender: FDA-Public Use
  Company Number: US-TEVA-496464USA

PATIENT
  Sex: Female

DRUGS (2)
  1. COPAXONE [Suspect]
     Active Substance: GLATIRAMER ACETATE
  2. GILENYA [Suspect]
     Active Substance: FINGOLIMOD HYDROCHLORIDE
     Route: 065

REACTIONS (9)
  - Fall [Unknown]
  - Tremor [Unknown]
  - Heart rate decreased [Unknown]
  - Myocardial infarction [Unknown]
  - Speech disorder [Unknown]
  - Hip arthroplasty [Unknown]
  - Bipolar disorder [Unknown]
  - Organ failure [Unknown]
  - Dysgraphia [Unknown]
